FAERS Safety Report 4859869-9 (Version None)
Quarter: 2005Q4

REPORT INFORMATION
  Report Type: 
  Country: None (occurrence: None)
  Receive Date: 20051219
  Receipt Date: 20051102
  Transmission Date: 20060501
  Serious: Yes (Hospitalization, Other)
  Sender: FDA-Public Use
  Company Number: HQWYE421004NOV05

PATIENT
  Sex: Male

DRUGS (5)
  1. ENBREL [Suspect]
     Indication: RHEUMATOID ARTHRITIS
     Route: 058
     Dates: start: 20051005, end: 20051013
  2. CANDESARTAN CILEXETIL [Concomitant]
     Dates: start: 20051005, end: 20051121
  3. AMARYL [Concomitant]
     Dates: start: 20051005, end: 20051111
  4. LOXONIN [Concomitant]
     Dates: start: 20051005, end: 20051111
  5. SELBEX [Concomitant]
     Dates: start: 20051005, end: 20051111

REACTIONS (14)
  - ASCITES [None]
  - BLOOD IMMUNOGLOBULIN G INCREASED [None]
  - COMPLEMENT FACTOR DECREASED [None]
  - FIBRIN D DIMER INCREASED [None]
  - HYPOALBUMINAEMIA [None]
  - HYPOPROTEINAEMIA [None]
  - IMMUNE COMPLEX LEVEL INCREASED [None]
  - LYMPHADENOPATHY [None]
  - OEDEMA PERIPHERAL [None]
  - PANCYTOPENIA [None]
  - PLEURAL EFFUSION [None]
  - RHEUMATOID FACTOR INCREASED [None]
  - WEIGHT DECREASED [None]
  - WEIGHT INCREASED [None]
